FAERS Safety Report 10029593 (Version 1)
Quarter: 2014Q1

REPORT INFORMATION
  Report Type: Spontaneous
  Country: US (occurrence: None)
  Receive Date: 20140320
  Receipt Date: 20140320
  Transmission Date: 20141002
  Serious: Yes (Death, Other)
  Sender: FDA-Public Use
  Company Number: None

PATIENT
  Age: 8 Year
  Sex: Female
  Weight: 25 kg

DRUGS (2)
  1. ZANAMIVIR [Suspect]
     Route: 042
     Dates: start: 20140228
  2. HEPARIN [Concomitant]

REACTIONS (9)
  - Acute respiratory distress syndrome [None]
  - Haemoptysis [None]
  - Pulmonary haemorrhage [None]
  - Influenza [None]
  - Pneumonia streptococcal [None]
  - Respiratory failure [None]
  - Respiratory disorder [None]
  - Cardiogenic shock [None]
  - Septic shock [None]
